FAERS Safety Report 21627940 (Version 2)
Quarter: 2023Q1

REPORT INFORMATION
  Report Type: Report from Study
  Country: US (occurrence: None)
  Receive Date: 20221122
  Receipt Date: 20230113
  Transmission Date: 20230417
  Serious: Yes (Disabling)
  Sender: FDA-Public Use
  Company Number: US-Merck Healthcare KGaA-9366062

PATIENT
  Sex: Female
  Weight: 65 kg

DRUGS (1)
  1. MAVENCLAD [Suspect]
     Active Substance: CLADRIBINE
     Indication: Multiple sclerosis
     Dosage: YEAR ONE CYCLE ONE THERAPY
     Route: 048
     Dates: start: 20221103, end: 20221107

REACTIONS (2)
  - Disability [Unknown]
  - Weight decreased [Unknown]
